FAERS Safety Report 9625008 (Version 2)
Quarter: 2013Q4

REPORT INFORMATION
  Report Type: Spontaneous
  Country: US (occurrence: US)
  Receive Date: 20131016
  Receipt Date: 20131016
  Transmission Date: 20140711
  Serious: Yes (Hospitalization)
  Sender: FDA-Public Use
  Company Number: US-ASTRAZENECA-2013SE56615

PATIENT
  Age: 81 Year
  Sex: Female
  Weight: 58.1 kg

DRUGS (10)
  1. NEXIUM [Suspect]
     Indication: GASTROOESOPHAGEAL REFLUX DISEASE
     Route: 048
     Dates: start: 201012, end: 20130722
  2. PRILOSEC OTC [Suspect]
     Indication: GASTROOESOPHAGEAL REFLUX DISEASE
     Route: 048
     Dates: start: 20130722, end: 20130724
  3. EYE DROPS [Concomitant]
     Indication: VISION BLURRED
     Route: 050
  4. HYDROCODONE [Concomitant]
     Indication: MIGRAINE
     Route: 048
     Dates: start: 2008
  5. DIAZEPAM [Concomitant]
     Indication: MIGRAINE
     Route: 048
     Dates: start: 2008
  6. AZOR [Concomitant]
     Indication: BLOOD PRESSURE
     Route: 048
     Dates: start: 201302
  7. BYSTOLIC [Concomitant]
     Indication: BLOOD PRESSURE
     Route: 048
     Dates: start: 201302
  8. LIPITOR [Concomitant]
     Indication: BLOOD CHOLESTEROL INCREASED
     Route: 048
     Dates: start: 201305
  9. LASIX [Concomitant]
     Indication: OEDEMA PERIPHERAL
     Route: 048
     Dates: start: 20130719, end: 20130723
  10. PANTOPRAZOLE [Concomitant]
     Indication: GASTROOESOPHAGEAL REFLUX DISEASE

REACTIONS (13)
  - Dehydration [Unknown]
  - Urinary tract infection [Unknown]
  - Abdominal discomfort [Unknown]
  - Pain [Unknown]
  - Dysphagia [Unknown]
  - Irritable bowel syndrome [Unknown]
  - Hypertension [Unknown]
  - Swelling [Unknown]
  - Gastrooesophageal reflux disease [Unknown]
  - Eye disorder [Unknown]
  - Drug ineffective [Unknown]
  - Drug ineffective [Unknown]
  - Intentional drug misuse [Unknown]
